FAERS Safety Report 4538527-4 (Version None)
Quarter: 2004Q4

REPORT INFORMATION
  Report Type: 
  Country: None (occurrence: None)
  Receive Date: 20041221
  Receipt Date: 20041210
  Transmission Date: 20050328
  Serious: Yes (Hospitalization)
  Sender: FDA-Public Use
  Company Number: S04-SWE-07890-02

PATIENT
  Sex: Female

DRUGS (3)
  1. CIPRALEX (ESCITALOPRAM) [Suspect]
     Dates: start: 20040101, end: 20040911
  2. VALPROIC ACID [Suspect]
     Dates: start: 20030501, end: 20040911
  3. TRANDATE [Concomitant]

REACTIONS (11)
  - ARTHROPATHY [None]
  - BODY TEMPERATURE INCREASED [None]
  - DRUG EXPOSURE DURING PREGNANCY [None]
  - DRUG WITHDRAWAL SYNDROME [None]
  - HYPERREFLEXIA [None]
  - HYPERTENSION NEONATAL [None]
  - HYPERTONIA NEONATAL [None]
  - IRRITABILITY [None]
  - NERVOUSNESS [None]
  - SCREAMING [None]
  - TREMOR NEONATAL [None]
